FAERS Safety Report 9024607 (Version 1)
Quarter: 2013Q1

REPORT INFORMATION
  Report Type: Spontaneous
  Country: US (occurrence: US)
  Receive Date: 20130121
  Receipt Date: 20130121
  Transmission Date: 20140127
  Serious: No
  Sender: FDA-Public Use
  Company Number: US-009507513-1205USA02380

PATIENT
  Sex: Female

DRUGS (7)
  1. ZIOPTAN [Suspect]
     Indication: GLAUCOMA
     Dosage: +GTT OU
     Route: 047
     Dates: start: 2012
  2. AZOPT [Concomitant]
     Indication: GLAUCOMA
     Dosage: GTT, OU
     Route: 047
  3. [COMPOSITION UNSPECIFIED] [Concomitant]
     Dosage: GTT PRN OU
     Route: 047
  4. ADVAIR [Concomitant]
     Indication: CHRONIC OBSTRUCTIVE PULMONARY DISEASE
     Dosage: ORAL
  5. MUCINEX [Concomitant]
     Indication: SINUS DISORDER
     Route: 048
  6. PLAVIX [Concomitant]
     Indication: THROMBOPHLEBITIS
     Route: 048
  7. GLIPIZIDE [Concomitant]
     Indication: TYPE 2 DIABETES MELLITUS
     Route: 048

REACTIONS (1)
  - Lip swelling [Recovered/Resolved]
